FAERS Safety Report 17611940 (Version 1)
Quarter: 2020Q2

REPORT INFORMATION
  Report Type: Spontaneous
  Country: JP (occurrence: JP)
  Receive Date: 20200401
  Receipt Date: 20200401
  Transmission Date: 20200713
  Serious: Yes (Hospitalization)
  Sender: FDA-Public Use
  Company Number: JP-EISAI MEDICAL RESEARCH-EC-2020-072418

PATIENT
  Age: 75 Year
  Sex: Male

DRUGS (2)
  1. LENVIMA [Suspect]
     Active Substance: LENVATINIB
     Dosage: 5 DAYS ON 2 DAYS OFF
     Route: 048
     Dates: end: 20200322
  2. LENVIMA [Suspect]
     Active Substance: LENVATINIB
     Indication: HEPATOCELLULAR CARCINOMA
     Route: 048
     Dates: start: 201909

REACTIONS (1)
  - Hepatorenal syndrome [Not Recovered/Not Resolved]

NARRATIVE: CASE EVENT DATE: 20200313
